FAERS Safety Report 8459794-0 (Version None)
Quarter: 2012Q2

REPORT INFORMATION
  Report Type: 
  Country: None (occurrence: None)
  Receive Date: 20120622
  Receipt Date: 20120612
  Transmission Date: 20120825
  Serious: Yes (Other)
  Sender: FDA-Public Use
  Company Number: PHHY2012IT052452

PATIENT

DRUGS (1)
  1. EVEROLIMUS [Suspect]

REACTIONS (1)
  - NEUTROPENIA [None]
